FAERS Safety Report 8565042-3 (Version None)
Quarter: 2012Q3

REPORT INFORMATION
  Report Type: 
  Country: None (occurrence: None)
  Receive Date: 20120803
  Receipt Date: 20120801
  Transmission Date: 20120928
  Serious: Yes (Life-Threatening, Hospitalization)
  Sender: FDA-Public Use
  Company Number: CN-ROCHE-1088287

PATIENT
  Sex: Male

DRUGS (1)
  1. PEGASYS [Suspect]
     Indication: HEPATITIS C
     Route: 058
     Dates: start: 20111112, end: 20120401

REACTIONS (3)
  - DIABETIC KETOACIDOSIS [None]
  - WHITE BLOOD CELL COUNT DECREASED [None]
  - LATENT AUTOIMMUNE DIABETES IN ADULTS [None]
